FAERS Safety Report 8076339-8 (Version None)
Quarter: 2012Q1

REPORT INFORMATION
  Report Type: 
  Country: None (occurrence: None)
  Receive Date: 20120127
  Receipt Date: 20120116
  Transmission Date: 20120608
  Serious: Yes (Death, Hospitalization)
  Sender: FDA-Public Use
  Company Number: SE-ROCHE-1032341

PATIENT
  Sex: Female

DRUGS (10)
  1. TIMOSAN (SWEDEN) [Concomitant]
  2. IMDUR [Concomitant]
  3. TRUSOPT [Concomitant]
  4. NITROMEX [Concomitant]
  5. KALCIPOS [Concomitant]
  6. ACTIVASE [Suspect]
     Indication: CEREBRAL THROMBOSIS
     Route: 042
     Dates: start: 20110531, end: 20110531
  7. HYDROXOCOBALAMIN [Concomitant]
  8. SIMVASTATIN [Concomitant]
  9. LEVOTHYROXINE SODIUM [Concomitant]
  10. ZOPICLON [Concomitant]

REACTIONS (1)
  - CEREBRAL HAEMORRHAGE [None]
